FAERS Safety Report 6102842-3 (Version None)
Quarter: 2009Q1

REPORT INFORMATION
  Report Type: 
  Country: None (occurrence: None)
  Receive Date: 20090304
  Receipt Date: 20090219
  Transmission Date: 20090719
  Serious: Yes (Death, Hospitalization)
  Sender: FDA-Public Use
  Company Number: CR-ROCHE-615994

PATIENT
  Age: 57 Year
  Sex: Male

DRUGS (5)
  1. PEGASYS [Suspect]
     Indication: HEPATITIS C
     Dosage: OTHER INDICATION : COPENSATED CIRROHSIS
     Route: 058
     Dates: start: 20090127, end: 20090210
  2. COPEGUS [Concomitant]
  3. SPIRONOLACTONE [Concomitant]
  4. PROPRANOLOL [Concomitant]
  5. FUROSEMIDE [Concomitant]

REACTIONS (6)
  - ACUTE HEPATIC FAILURE [None]
  - HEPATIC ENCEPHALOPATHY [None]
  - HEPATOPULMONARY SYNDROME [None]
  - HEPATORENAL SYNDROME [None]
  - NAUSEA [None]
  - VOMITING [None]
